FAERS Safety Report 5888875-0 (Version None)
Quarter: 2008Q3

REPORT INFORMATION
  Report Type: 
  Country: None (occurrence: None)
  Receive Date: 20080919
  Receipt Date: 20080912
  Transmission Date: 20090109
  Serious: Yes (Hospitalization)
  Sender: FDA-Public Use
  Company Number: PHHY2008JP14289

PATIENT
  Sex: Female
  Weight: 55 kg

DRUGS (2)
  1. FEMARA [Suspect]
     Indication: BREAST CANCER RECURRENT
     Dosage: 2.5 MG DAILY
     Route: 048
     Dates: start: 20080527
  2. ANGIOTENSIN II ANTAGONISTS [Concomitant]

REACTIONS (5)
  - DIABETES INSIPIDUS [None]
  - HYPOTHALAMO-PITUITARY DISORDER [None]
  - NUCLEAR MAGNETIC RESONANCE IMAGING ABNORMAL [None]
  - POLYDIPSIA [None]
  - POLYURIA [None]
